FAERS Safety Report 25807072 (Version 1)
Quarter: 2025Q3

REPORT INFORMATION
  Report Type: Other
  Country: CA (occurrence: CA)
  Receive Date: 20250916
  Receipt Date: 20250916
  Transmission Date: 20251021
  Serious: Yes (Other)
  Sender: APOTEX
  Company Number: CA-PGRTD-E2B_08052919

PATIENT
  Age: 62 Year
  Sex: Male

DRUGS (6)
  1. DEXAMETHASONE [Suspect]
     Active Substance: DEXAMETHASONE
     Indication: Product used for unknown indication
     Route: 065
  2. TALQUETAMAB [Suspect]
     Active Substance: TALQUETAMAB
     Indication: Plasma cell myeloma
     Route: 058
  3. TALQUETAMAB [Suspect]
     Active Substance: TALQUETAMAB
     Route: 058
  4. TALQUETAMAB [Suspect]
     Active Substance: TALQUETAMAB
     Route: 058
  5. ACETAMINOPHEN [Concomitant]
     Active Substance: ACETAMINOPHEN
     Indication: Product used for unknown indication
     Route: 065
  6. DIPHENHYDRAMINE [Concomitant]
     Active Substance: DIPHENHYDRAMINE
     Indication: Product used for unknown indication
     Route: 065

REACTIONS (5)
  - Pyrexia [Recovering/Resolving]
  - Hypoaesthesia [Recovering/Resolving]
  - Aphonia [Recovering/Resolving]
  - Intentional product use issue [Recovering/Resolving]
  - Cytokine release syndrome [Recovering/Resolving]
